FAERS Safety Report 18978835 (Version 1)
Quarter: 2021Q1

REPORT INFORMATION
  Report Type: Spontaneous
  Country: US (occurrence: US)
  Receive Date: 20210308
  Receipt Date: 20210308
  Transmission Date: 20210420
  Serious: No
  Sender: FDA-Public Use
  Company Number: US-SA-2021SA066968

PATIENT
  Sex: Male

DRUGS (1)
  1. CAPRELSA [Suspect]
     Active Substance: VANDETANIB
     Dosage: DRUG STRUCTURE DOSAGE : 200MG

REACTIONS (3)
  - Neoplasm [Unknown]
  - Tracheal disorder [Unknown]
  - Initial insomnia [Unknown]
